FAERS Safety Report 5941727-X (Version None)
Quarter: 2008Q4

REPORT INFORMATION
  Report Type: 
  Country: None (occurrence: None)
  Receive Date: 20081105
  Receipt Date: 20081031
  Transmission Date: 20090506
  Serious: Yes (Other)
  Sender: FDA-Public Use
  Company Number: US-BRISTOL-MYERS SQUIBB COMPANY-14391197

PATIENT
  Age: 53 Year
  Sex: Male

DRUGS (2)
  1. TRIAMCINOLONE ACETONIDE [Suspect]
     Indication: ANALGESIA
  2. BUPIVACAINE [Suspect]
     Indication: ANALGESIA
     Dosage: 1 DOSAGE FORM = 0.75 CC OF 0.75%

REACTIONS (1)
  - SPINAL CORD INFARCTION [None]
